FAERS Safety Report 10714920 (Version 1)
Quarter: 2015Q1

REPORT INFORMATION
  Report Type: Spontaneous
  Country: US (occurrence: US)
  Receive Date: 20150115
  Receipt Date: 20150115
  Transmission Date: 20150721
  Serious: Yes (Hospitalization, Other)
  Sender: FDA-Public Use
  Company Number: US-009507513-1501USA004646

PATIENT
  Age: 56 Year
  Sex: Female

DRUGS (1)
  1. DULERA [Suspect]
     Active Substance: FORMOTEROL FUMARATE DIHYDRATE\MOMETASONE FUROATE
     Indication: DYSPNOEA
     Dosage: 2 PUFFS / TWICE A DAY
     Route: 055
     Dates: start: 201410

REACTIONS (3)
  - Hip fracture [Unknown]
  - Fall [Unknown]
  - Product quality issue [Unknown]

NARRATIVE: CASE EVENT DATE: 20141224
